FAERS Safety Report 8818582 (Version 1)
Quarter: 2012Q4

REPORT INFORMATION
  Report Type: 
  Country: FR (occurrence: FR)
  Receive Date: 20121001
  Receipt Date: 20121001
  Transmission Date: 20130627
  Serious: Yes (Other)
  Sender: FDA-Public Use
  Company Number: FR-PFIZER INC-2012237142

PATIENT
  Age: 59 Year
  Sex: Female

DRUGS (4)
  1. DALACINE [Suspect]
     Dosage: 1 DF, single
     Route: 042
     Dates: start: 20120521, end: 20120521
  2. NIMBEX [Suspect]
     Indication: HYSTERECTOMY
     Dosage: 1 DF, single
     Route: 042
     Dates: start: 20120521, end: 20120521
  3. COAPROVEL [Concomitant]
     Route: 048
  4. ANTIDEPRESSANTS [Concomitant]

REACTIONS (2)
  - Anaphylactoid reaction [Recovered/Resolved]
  - Skin test negative [Unknown]
